FAERS Safety Report 16290757 (Version 1)
Quarter: 2019Q2

REPORT INFORMATION
  Report Type: Spontaneous
  Country: US (occurrence: US)
  Receive Date: 20190509
  Receipt Date: 20190509
  Transmission Date: 20190711
  Serious: Yes (Other)
  Sender: FDA-Public Use
  Company Number: US-AMGEN-USASP2019070882

PATIENT
  Age: 55 Year
  Sex: Male

DRUGS (1)
  1. ETANERCEPT [Suspect]
     Active Substance: ETANERCEPT
     Indication: PSORIATIC ARTHROPATHY
     Dosage: UNK
     Route: 065

REACTIONS (13)
  - Blood testosterone decreased [Unknown]
  - Hypertension [Unknown]
  - Gynaecomastia [Unknown]
  - Glomerulonephritis acute [Unknown]
  - C-reactive protein increased [Unknown]
  - Proteinuria [Unknown]
  - Antinuclear antibody [Unknown]
  - Vitiligo [Unknown]
  - Thyroid function test abnormal [Unknown]
  - Red blood cell sedimentation rate increased [Unknown]
  - Vasculitis [Unknown]
  - Thyroiditis [Unknown]
  - Hypergammaglobulinaemia [Unknown]
